FAERS Safety Report 25491234 (Version 1)
Quarter: 2025Q2

REPORT INFORMATION
  Report Type: Spontaneous
  Country: JP (occurrence: JP)
  Receive Date: 20250629
  Receipt Date: 20250629
  Transmission Date: 20250716
  Serious: Yes (Other)
  Sender: AMGEN
  Company Number: JP-DSJP-DS-2025-149530-

PATIENT
  Age: 58 Year
  Sex: Female

DRUGS (1)
  1. DENOSUMAB [Suspect]
     Active Substance: DENOSUMAB
     Indication: Bone giant cell tumour
     Route: 065

REACTIONS (1)
  - Osteosarcoma recurrent [Unknown]
